FAERS Safety Report 10272762 (Version 1)
Quarter: 2014Q2

REPORT INFORMATION
  Report Type: Spontaneous
  Country: US (occurrence: None)
  Receive Date: 20140630
  Receipt Date: 20140630
  Transmission Date: 20141212
  Serious: Yes (Hospitalization)
  Sender: FDA-Public Use
  Company Number: POI0581201400008

PATIENT
  Age: 47 Year
  Sex: Female

DRUGS (2)
  1. AZATHIOPRINE [Suspect]
     Indication: MYASTHENIA GRAVIS
  2. PREDNISONE [Suspect]
     Indication: MYASTHENIA GRAVIS

REACTIONS (4)
  - Histiocytosis haematophagic [None]
  - Respiratory failure [None]
  - Cytomegalovirus infection [None]
  - Coagulopathy [None]
